FAERS Safety Report 20022732 (Version 1)
Quarter: 2021Q4

REPORT INFORMATION
  Report Type: Spontaneous
  Country: PT (occurrence: PT)
  Receive Date: 20211102
  Receipt Date: 20211102
  Transmission Date: 20220304
  Serious: Yes (Other)
  Sender: FDA-Public Use
  Company Number: PT-JANSSEN-2021-PEL-000775

PATIENT
  Age: 27 Year
  Sex: Female

DRUGS (3)
  1. ROPIVACAINE [Suspect]
     Active Substance: ROPIVACAINE
     Indication: Product used for unknown indication
     Dosage: 8 MILLILITER (8 MILLILITER (0.2 PERCENT) )
     Route: 065
  2. LIDOCAINE [Suspect]
     Active Substance: LIDOCAINE
     Indication: Epidural analgesia
     Dosage: 3 MILLILITER (3 MILLILITER (2 PERCENT) )
     Route: 065
  3. SUFENTANIL [Suspect]
     Active Substance: SUFENTANIL
     Indication: Product used for unknown indication
     Dosage: 10 MICROGRAM
     Route: 065

REACTIONS (2)
  - Horner^s syndrome [Recovered/Resolved]
  - Maternal exposure during delivery [Unknown]
